FAERS Safety Report 7958139-X (Version None)
Quarter: 2011Q4

REPORT INFORMATION
  Report Type: 
  Country: None (occurrence: None)
  Receive Date: 20111205
  Receipt Date: 20111128
  Transmission Date: 20120403
  Serious: Yes (Hospitalization)
  Sender: FDA-Public Use
  Company Number: US-GILEAD-2011-0047211

PATIENT
  Sex: Female

DRUGS (3)
  1. LETAIRIS [Suspect]
     Indication: HEPATIC CIRRHOSIS
  2. LETAIRIS [Suspect]
     Indication: PULMONARY HYPERTENSION
     Dosage: 5 MG, UNK
     Route: 048
     Dates: start: 20110624
  3. ADCIRCA [Concomitant]

REACTIONS (3)
  - ENCEPHALOPATHY [None]
  - HEPATIC CIRRHOSIS [None]
  - DEHYDRATION [None]
